FAERS Safety Report 9153803 (Version 1)
Quarter: 2013Q1

REPORT INFORMATION
  Report Type: Report from Study
  Country: US (occurrence: US)
  Receive Date: 20130311
  Receipt Date: 20130311
  Transmission Date: 20140127
  Serious: Yes (Hospitalization)
  Sender: FDA-Public Use
  Company Number: PHHO2007US10040

PATIENT
  Age: 40 Year
  Sex: Female
  Weight: 67.6 kg

DRUGS (2)
  1. PLACEBO [Suspect]
     Indication: MULTIPLE SCLEROSIS
     Route: 048
  2. TRILEPTAL [Suspect]
     Indication: NEURALGIA
     Dosage: 300 MG, TID
     Route: 048
     Dates: start: 200608, end: 20070612

REACTIONS (2)
  - Hyponatraemia [Recovered/Resolved]
  - Blood sodium decreased [Recovered/Resolved]
